FAERS Safety Report 15035441 (Version 2)
Quarter: 2018Q3

REPORT INFORMATION
  Report Type: Spontaneous
  Country: PR (occurrence: PR)
  Receive Date: 20180620
  Receipt Date: 20180730
  Transmission Date: 20181010
  Serious: No
  Sender: FDA-Public Use
  Company Number: PR-PFIZER INC-2018249423

PATIENT
  Age: 44 Year
  Sex: Female
  Weight: 65 kg

DRUGS (1)
  1. IBRANCE [Suspect]
     Active Substance: PALBOCICLIB
     Indication: BREAST CANCER FEMALE
     Dosage: 125 MG, CYCLIC [1 CAP DAILY X 21 DAYS / 7 OFF]
     Route: 048
     Dates: start: 20180531

REACTIONS (2)
  - Vaginal haemorrhage [Unknown]
  - Balance disorder [Not Recovered/Not Resolved]

NARRATIVE: CASE EVENT DATE: 2018
